FAERS Safety Report 7199561-1 (Version None)
Quarter: 2010Q4

REPORT INFORMATION
  Report Type: 
  Country: None (occurrence: None)
  Receive Date: 20101214
  Receipt Date: 20101129
  Transmission Date: 20110411
  Serious: Yes (Death, Other)
  Sender: FDA-Public Use
  Company Number: JP-004254

PATIENT
  Age: 60 Year
  Sex: Male

DRUGS (1)
  1. MINIRIN/DDAVP (DESMOPRESSIN SPRAY 2.5 KYOWA) (NOT SPECIFIED) [Suspect]
     Indication: DIABETES INSIPIDUS
     Dosage: ONE SPRAY BEFORE GOING TO BED NASAL
     Route: 045

REACTIONS (2)
  - CEREBRAL HAEMORRHAGE [None]
  - CONVULSION [None]
